FAERS Safety Report 4697548-1 (Version None)
Quarter: 2005Q2

REPORT INFORMATION
  Report Type: 
  Country: None (occurrence: None)
  Receive Date: 20050622
  Receipt Date: 20050311
  Transmission Date: 20051028
  Serious: Yes (Death, Hospitalization, Other)
  Sender: FDA-Public Use
  Company Number: US-MERCK-0503USA02541

PATIENT
  Age: 62 Year
  Sex: Male
  Weight: 114 kg

DRUGS (27)
  1. VIOXX [Suspect]
     Indication: OSTEOARTHRITIS
     Route: 048
     Dates: start: 20010101, end: 20031201
  2. LOPID [Concomitant]
     Route: 065
     Dates: start: 20030320, end: 20040112
  3. INSULIN [Concomitant]
     Route: 065
  4. PLAVIX [Concomitant]
     Route: 065
     Dates: start: 20030320, end: 20040112
  5. ASPIRIN [Concomitant]
     Route: 065
     Dates: start: 20000101, end: 20040112
  6. FUROSEMIDE [Concomitant]
     Route: 065
     Dates: start: 20020418, end: 20040112
  7. ACTOS [Concomitant]
     Route: 065
  8. AMBIEN [Concomitant]
     Route: 065
     Dates: start: 20020322, end: 20040112
  9. HUMULIN [Concomitant]
     Route: 065
  10. LIPITOR [Concomitant]
     Route: 065
     Dates: start: 20020418, end: 20040112
  11. FLUOXETINE [Concomitant]
     Route: 065
     Dates: start: 20020418, end: 20040112
  12. LISINOPRIL [Concomitant]
     Route: 065
     Dates: start: 20020926, end: 20040112
  13. ZYRTEC [Concomitant]
     Route: 065
  14. KLOR-CON [Concomitant]
     Route: 065
  15. FERROUS SULFATE [Concomitant]
     Route: 065
  16. SEREVENT [Concomitant]
     Route: 065
  17. COMBIVENT [Concomitant]
     Route: 065
  18. GLUCOPHAGE XR [Concomitant]
     Route: 065
  19. GLUCOTROL XL [Concomitant]
     Route: 065
  20. NOVOLOG [Concomitant]
     Route: 065
  21. ACETAMINOPHEN AND HYDROCODONE BITARTRATE [Concomitant]
     Route: 065
     Dates: start: 20031008, end: 20040112
  22. TOBRADEX [Concomitant]
     Route: 065
  23. PATANOL [Concomitant]
     Route: 065
  24. LIDOCAINE [Concomitant]
     Route: 065
  25. ZAROXOLYN [Concomitant]
     Route: 065
     Dates: start: 20020522, end: 20040112
  26. ALTACE [Concomitant]
     Route: 065
     Dates: start: 20031009, end: 20040112
  27. ZESTRIL [Concomitant]
     Route: 065

REACTIONS (16)
  - BLOOD CHOLESTEROL INCREASED [None]
  - CARDIAC ARREST [None]
  - CARDIAC DISORDER [None]
  - CARDIAC FAILURE CONGESTIVE [None]
  - CARDIOGENIC SHOCK [None]
  - CEREBROVASCULAR ACCIDENT [None]
  - CHEST PAIN [None]
  - CHRONIC OBSTRUCTIVE PULMONARY DISEASE [None]
  - DEPRESSION [None]
  - DYSPNOEA [None]
  - EYE DISORDER [None]
  - HYPERSENSITIVITY [None]
  - HYPERTENSION [None]
  - MYOCARDIAL INFARCTION [None]
  - RENAL FAILURE [None]
  - SLEEP APNOEA SYNDROME [None]
